FAERS Safety Report 23467072 (Version 1)
Quarter: 2024Q1

REPORT INFORMATION
  Report Type: Spontaneous
  Country: IN (occurrence: IN)
  Receive Date: 20240201
  Receipt Date: 20240201
  Transmission Date: 20240410
  Serious: Yes (Other)
  Sender: FDA-Public Use
  Company Number: IN-002147023-NVSC2024IN018035

PATIENT
  Age: 48 Year
  Sex: Female

DRUGS (1)
  1. RIBOCICLIB [Suspect]
     Active Substance: RIBOCICLIB
     Indication: Product used for unknown indication
     Dosage: 600 MG, QD
     Route: 048
     Dates: start: 20230605

REACTIONS (6)
  - Metastatic neoplasm [Unknown]
  - Metastases to bone [Unknown]
  - Myosclerosis [Unknown]
  - Metastases to lymph nodes [Unknown]
  - Lymph node calcification [Unknown]
  - Seroma [Unknown]

NARRATIVE: CASE EVENT DATE: 20230905
